FAERS Safety Report 7909321-9 (Version None)
Quarter: 2011Q4

REPORT INFORMATION
  Report Type: 
  Country: None (occurrence: None)
  Receive Date: 20111111
  Receipt Date: 20111103
  Transmission Date: 20120403
  Serious: Yes (Hospitalization)
  Sender: FDA-Public Use
  Company Number: DE-UCBSA-038965

PATIENT
  Sex: Female
  Weight: 6.8 kg

DRUGS (2)
  1. LUMINALETTEN [Concomitant]
     Indication: PARTIAL SEIZURES
     Dosage: 1/4 TABLET IN THE MORNINGS AND 1/4 TABLET IN THE EVENINGS AND TOTAL DAILY DOSE:1/2 TABLET.
     Dates: start: 20110611
  2. KEPPRA [Suspect]
     Indication: PARTIAL SEIZURES
     Dosage: TYPE OF APPLICATION:DOSING PIPETTE
     Route: 048
     Dates: start: 20110802, end: 20110901

REACTIONS (2)
  - EATING DISORDER SYMPTOM [None]
  - FLUID IMBALANCE [None]
